FAERS Safety Report 4600029-4 (Version None)
Quarter: 2005Q1

REPORT INFORMATION
  Report Type: 
  Country: None (occurrence: None)
  Receive Date: 20050303
  Receipt Date: 20050223
  Transmission Date: 20050727
  Serious: Yes (Other)
  Sender: FDA-Public Use
  Company Number: 2005-02-1391

PATIENT
  Sex: Female

DRUGS (1)
  1. TEMODAL [Suspect]
     Dosage: 225 MG QD
     Dates: start: 20050208, end: 20050212

REACTIONS (1)
  - MUSCLE SPASTICITY [None]
